FAERS Safety Report 21107715 (Version 2)
Quarter: 2022Q3

REPORT INFORMATION
  Report Type: Report from Study
  Country: CL (occurrence: None)
  Receive Date: 20220720
  Receipt Date: 20220907
  Transmission Date: 20221026
  Serious: Yes (Other)
  Sender: FDA-Public Use
  Company Number: CL-Merck Healthcare KGaA-9336639

PATIENT
  Sex: Male

DRUGS (2)
  1. MAVENCLAD [Suspect]
     Active Substance: CLADRIBINE
     Indication: Multiple sclerosis
     Dosage: WEEK ONE THERAPY
     Route: 048
     Dates: start: 20200121
  2. MAVENCLAD [Suspect]
     Active Substance: CLADRIBINE
     Dosage: WEEK TWO THERAPY
     Route: 048
     Dates: start: 20200128

REACTIONS (5)
  - Colon cancer [Recovering/Resolving]
  - Irritable bowel syndrome [Recovering/Resolving]
  - Rectal haemorrhage [Recovering/Resolving]
  - Illness [Recovering/Resolving]
  - Mobility decreased [Recovering/Resolving]
